FAERS Safety Report 19053148 (Version 1)
Quarter: 2021Q1

REPORT INFORMATION
  Report Type: Report from Study
  Country: US (occurrence: US)
  Receive Date: 20210324
  Receipt Date: 20210324
  Transmission Date: 20210420
  Serious: Yes (Hospitalization, Other)
  Sender: FDA-Public Use
  Company Number: US-MYLANLABS-2021M1017137

PATIENT

DRUGS (3)
  1. INDOMETACIN [Suspect]
     Active Substance: INDOMETHACIN
     Dosage: 25 MILLIGRAM, QID MAINTENANCE DOSE EVERY DAY;..
     Route: 064
  2. INDOMETACIN [Suspect]
     Active Substance: INDOMETHACIN
     Dosage: 50 MILLIGRAM, QID FOR UP TO 48H
     Route: 064
  3. INDOMETACIN [Suspect]
     Active Substance: INDOMETHACIN
     Indication: SHORTENED CERVIX
     Dosage: 100 MILLIGRAM THERAPY STARTED PRIOR ..
     Route: 064

REACTIONS (3)
  - Neonatal respiratory distress syndrome [Unknown]
  - Foetal exposure during pregnancy [Unknown]
  - Oligohydramnios [Unknown]
